FAERS Safety Report 10557316 (Version 1)
Quarter: 2014Q4

REPORT INFORMATION
  Report Type: Report from Study
  Country: US (occurrence: US)
  Receive Date: 20141031
  Receipt Date: 20141031
  Transmission Date: 20150529
  Serious: Yes (Other)
  Sender: FDA-Public Use
  Company Number: US-ABBVIE-14P-163-1301147-00

PATIENT
  Sex: Male

DRUGS (1)
  1. ANDROGEL [Suspect]
     Active Substance: TESTOSTERONE
     Indication: TESTICULAR FAILURE
     Dosage: 1 PACKET
     Route: 061
     Dates: start: 201306

REACTIONS (2)
  - Coronary arterial stent insertion [Unknown]
  - Cardiac operation [Unknown]

NARRATIVE: CASE EVENT DATE: 2014
